FAERS Safety Report 25184595 (Version 1)
Quarter: 2025Q2

REPORT INFORMATION
  Report Type: Spontaneous
  Country: JP (occurrence: JP)
  Receive Date: 20250410
  Receipt Date: 20250410
  Transmission Date: 20250716
  Serious: Yes (Death, Hospitalization, Other)
  Sender: MERCK SHARP AND DOHME
  Company Number: JP-009507513-2273457

PATIENT
  Age: 77 Year
  Sex: Male

DRUGS (2)
  1. PEMBROLIZUMAB [Suspect]
     Active Substance: PEMBROLIZUMAB
     Indication: Bladder transitional cell carcinoma
  2. PADCEV [Concomitant]
     Active Substance: ENFORTUMAB VEDOTIN-EJFV
     Indication: Bladder transitional cell carcinoma

REACTIONS (16)
  - Death [Fatal]
  - Rash [Recovering/Resolving]
  - Oxygen saturation decreased [Unknown]
  - Beta haemolytic streptococcal infection [Unknown]
  - Dyspnoea [Unknown]
  - Decreased appetite [Unknown]
  - Muscle abscess [Recovering/Resolving]
  - Myelodysplastic syndrome [Unknown]
  - Cellulitis [Unknown]
  - Diarrhoea [Recovering/Resolving]
  - Malignant neoplasm progression [Unknown]
  - Malaise [Unknown]
  - Lung opacity [Unknown]
  - Septic pulmonary embolism [Recovering/Resolving]
  - Pyrexia [Unknown]
  - Staphylococcal infection [Unknown]

NARRATIVE: CASE EVENT DATE: 20211001
